FAERS Safety Report 18518426 (Version 3)
Quarter: 2020Q4

REPORT INFORMATION
  Report Type: Spontaneous
  Country: US (occurrence: US)
  Receive Date: 20201118
  Receipt Date: 20201228
  Transmission Date: 20210114
  Serious: Yes (Other)
  Sender: FDA-Public Use
  Company Number: US-BAYER-2020-250088

PATIENT
  Age: 33 Year
  Sex: Female

DRUGS (1)
  1. MIRENA [Suspect]
     Active Substance: LEVONORGESTREL
     Dosage: 20 ?G PER DAY CONTINUOUSLY
     Route: 015
     Dates: start: 20200228, end: 20201111

REACTIONS (4)
  - Uterine haemorrhage [None]
  - Medical device pain [None]
  - Device dislocation [Recovered/Resolved]
  - Polymenorrhoea [None]

NARRATIVE: CASE EVENT DATE: 2020
